FAERS Safety Report 7601413-7 (Version None)
Quarter: 2011Q3

REPORT INFORMATION
  Report Type: 
  Country: None (occurrence: None)
  Receive Date: 20110711
  Receipt Date: 20110629
  Transmission Date: 20111222
  Serious: Yes (Other)
  Sender: FDA-Public Use
  Company Number: US-MERCK-1104USA01830

PATIENT
  Age: 57 Year
  Sex: Female

DRUGS (3)
  1. ATENOLOL [Concomitant]
     Route: 065
  2. JANUMET [Suspect]
     Route: 048
  3. METFORMIN [Concomitant]
     Route: 065

REACTIONS (1)
  - CEREBROVASCULAR ACCIDENT [None]
